FAERS Safety Report 4518482-3 (Version None)
Quarter: 2004Q4

REPORT INFORMATION
  Report Type: 
  Country: None (occurrence: None)
  Receive Date: 20041202
  Receipt Date: 20041119
  Transmission Date: 20050328
  Serious: Yes (Hospitalization, Other)
  Sender: FDA-Public Use
  Company Number: HQWYE628827AUG04

PATIENT
  Age: 56 Year
  Sex: Male
  Weight: 76 kg

DRUGS (10)
  1. RAPAMUNE [Suspect]
     Indication: PROPHYLAXIS AGAINST TRANSPLANT REJECTION
     Dosage: LOADING DOSE OF 15 MG THEN 5 MG DAILY (EXACT DATES NOT SPECIFIED), ORAL
     Route: 048
     Dates: start: 20040821, end: 20040824
  2. CARVEDILOL [Concomitant]
  3. SIMVASTATIN [Concomitant]
  4. ZETIA [Concomitant]
  5. PLAVIX [Concomitant]
  6. EPOGEN [Concomitant]
  7. REGLAN [Concomitant]
  8. ISONIAZID [Concomitant]
  9. LASIX [Concomitant]
  10. QUININE (QUNINE) [Concomitant]

REACTIONS (16)
  - ABDOMINAL PAIN LOWER [None]
  - BLOOD BICARBONATE DECREASED [None]
  - BLOOD CREATININE INCREASED [None]
  - BLOOD GLUCOSE INCREASED [None]
  - CORONARY ARTERY STENOSIS [None]
  - ECCHYMOSIS [None]
  - EXTRASYSTOLES [None]
  - HAEMATOCRIT DECREASED [None]
  - HAEMOGLOBIN DECREASED [None]
  - MYOCARDIAL INFARCTION [None]
  - PERIRENAL HAEMATOMA [None]
  - PO2 DECREASED [None]
  - RENAL HAEMORRHAGE [None]
  - VENTRICULAR EXTRASYSTOLES [None]
  - WHITE BLOOD CELL COUNT INCREASED [None]
  - WOUND DEHISCENCE [None]
